FAERS Safety Report 8007162 (Version 3)
Quarter: 2012Q4

REPORT INFORMATION
  Report Type: 
  Country: CA (occurrence: CA)
  Receive Date: 20110623
  Receipt Date: 20121008
  Transmission Date: 20130627
  Serious: Yes (Hospitalization, Disabling, Other)
  Sender: FDA-Public Use
  Company Number: CA-B.I. PHARMACEUTICALS,INC./RIDGEFIELD-2011-CN-00805CN

PATIENT
  Age: 86 Year
  Sex: Female
  Weight: 38.55 kg

DRUGS (9)
  1. AGGRENOX [Suspect]
     Indication: TRANSIENT ISCHAEMIC ATTACK
     Route: 065
     Dates: start: 201006
  2. ARICEPT [Suspect]
     Indication: DEMENTIA
     Dosage: once daily in morning
     Route: 048
     Dates: start: 20100629, end: 20100713
  3. RAMIPRIL [Suspect]
     Indication: TRANSIENT ISCHAEMIC ATTACK
     Route: 048
     Dates: start: 201006
  4. ROBAXICIN [Concomitant]
     Indication: GROIN PAIN
     Route: 065
     Dates: start: 201006
  5. ROBAXICIN [Concomitant]
     Indication: PAIN IN EXTREMITY
  6. TYLENOL 3 [Concomitant]
     Indication: GROIN PAIN
     Route: 065
     Dates: start: 201006
  7. TYLENOL 3 [Concomitant]
     Indication: PAIN IN EXTREMITY
  8. BABY ASPIRIN [Concomitant]
     Route: 065
  9. SINEMET [Concomitant]
     Indication: PARKINSON^S DISEASE
     Route: 065

REACTIONS (9)
  - Blood pressure orthostatic decreased [Recovered/Resolved]
  - Syncope [Recovered/Resolved]
  - Convulsion [Recovered/Resolved]
  - Decreased appetite [Recovered/Resolved]
  - Gastrooesophageal reflux disease [Recovered/Resolved]
  - Dementia [Recovered/Resolved]
  - Altered state of consciousness [Unknown]
  - Orthostatic hypotension [Recovered/Resolved]
  - Loss of consciousness [Recovered/Resolved]
